FAERS Safety Report 7999010-7 (Version None)
Quarter: 2011Q4

REPORT INFORMATION
  Report Type: 
  Country: None (occurrence: None)
  Receive Date: 20111221
  Receipt Date: 20111212
  Transmission Date: 20120403
  Serious: Yes (Other)
  Sender: FDA-Public Use
  Company Number: US-JNJFOC-20111205274

PATIENT
  Sex: Female
  Weight: 79.5 kg

DRUGS (6)
  1. ALLOPURINOL [Concomitant]
  2. PREDNISONE TAB [Concomitant]
  3. MERCAPTOPURINE [Concomitant]
  4. REMICADE [Suspect]
     Dosage: MOST RECENT INFUSTION REPROTED AS 29-JUL-2010
     Route: 042
     Dates: start: 20100505
  5. REMICADE [Suspect]
     Route: 042
     Dates: start: 20100101
  6. REMICADE [Suspect]
     Indication: CROHN'S DISEASE
     Route: 042
     Dates: start: 20110729

REACTIONS (1)
  - CROHN'S DISEASE [None]
